FAERS Safety Report 21681012 (Version 1)
Quarter: 2022Q4

REPORT INFORMATION
  Report Type: Spontaneous
  Country: ID (occurrence: ID)
  Receive Date: 20221205
  Receipt Date: 20221205
  Transmission Date: 20230112
  Serious: Yes (Hospitalization, Other)
  Sender: FDA-Public Use
  Company Number: ID-JNJFOC-20221162504

PATIENT
  Age: 41 Year
  Sex: Male
  Weight: 68 kg

DRUGS (25)
  1. BEDAQUILINE [Suspect]
     Active Substance: BEDAQUILINE
     Indication: Tuberculosis
     Dosage: 2 WEEKS
     Route: 048
  2. BEDAQUILINE [Suspect]
     Active Substance: BEDAQUILINE
     Dosage: 22 WEEKS
     Route: 048
  3. BEDAQUILINE [Suspect]
     Active Substance: BEDAQUILINE
     Dosage: INTERMITTENT DOSE FOR 2 WEEKS
     Route: 048
     Dates: end: 20210430
  4. BEDAQUILINE [Suspect]
     Active Substance: BEDAQUILINE
     Dosage: STARTED ON 18/JUN/2021
     Route: 048
  5. LEVOFLOXACIN [Suspect]
     Active Substance: LEVOFLOXACIN
     Indication: Tuberculosis
     Route: 048
  6. LEVOFLOXACIN [Suspect]
     Active Substance: LEVOFLOXACIN
     Dosage: INTERMITTENT DOSE FOR 2 WEEKS
     Route: 048
     Dates: end: 20210430
  7. LEVOFLOXACIN [Suspect]
     Active Substance: LEVOFLOXACIN
     Dosage: STARTED ON 18/JUN/2021
     Route: 048
  8. CLOFAZIMINE [Suspect]
     Active Substance: CLOFAZIMINE
     Indication: Tuberculosis
     Route: 048
  9. CLOFAZIMINE [Suspect]
     Active Substance: CLOFAZIMINE
     Dosage: INTERMITTENT DOSE FOR 2 WEEKS
     Route: 048
     Dates: end: 20210430
  10. CLOFAZIMINE [Suspect]
     Active Substance: CLOFAZIMINE
     Dosage: RESTARTED ON 18/JUN/2021
     Route: 048
  11. ETHIONAMIDE [Suspect]
     Active Substance: ETHIONAMIDE
     Indication: Tuberculosis
     Route: 048
  12. ETHIONAMIDE [Suspect]
     Active Substance: ETHIONAMIDE
     Dosage: INTERMITTENT DOSE FOR 2 WEEKS
     Route: 048
     Dates: end: 20210430
  13. ETHIONAMIDE [Suspect]
     Active Substance: ETHIONAMIDE
     Dosage: RESTARTED ON 18/JUN/2021
     Route: 048
  14. ETHAMBUTOL [Suspect]
     Active Substance: ETHAMBUTOL HYDROCHLORIDE
     Indication: Tuberculosis
     Route: 048
  15. ETHAMBUTOL [Suspect]
     Active Substance: ETHAMBUTOL HYDROCHLORIDE
     Dosage: INTERMITTENT DOSE FOR 2 WEEKS
     Route: 048
     Dates: end: 20210430
  16. ETHAMBUTOL [Suspect]
     Active Substance: ETHAMBUTOL HYDROCHLORIDE
     Dosage: RESTARTED ON 18/JUN/2021
     Route: 048
  17. PYRAZINAMIDE [Suspect]
     Active Substance: PYRAZINAMIDE
     Indication: Tuberculosis
     Route: 048
  18. PYRAZINAMIDE [Suspect]
     Active Substance: PYRAZINAMIDE
     Dosage: INTERMITTENT DOSE FOR 2 WEEKS
     Route: 048
     Dates: end: 20210430
  19. PYRAZINAMIDE [Suspect]
     Active Substance: PYRAZINAMIDE
     Dosage: RESTARTED ON 18/JUN/2021
     Route: 048
  20. ISONIAZID [Suspect]
     Active Substance: ISONIAZID
     Indication: Tuberculosis
     Route: 048
  21. ISONIAZID [Suspect]
     Active Substance: ISONIAZID
     Dosage: INTERMITTENT DOSE FOR 2 WEEKS
     Route: 048
     Dates: end: 20210430
  22. ISONIAZID [Suspect]
     Active Substance: ISONIAZID
     Dosage: RESTARTED ON 18/JUN/2021
     Route: 048
  23. PYRIDOXINE [Suspect]
     Active Substance: PYRIDOXINE
     Indication: Tuberculosis
     Route: 048
  24. PYRIDOXINE [Suspect]
     Active Substance: PYRIDOXINE
     Dosage: INTERMITTENT DOSE FOR 2 WEEKS
     Route: 048
     Dates: end: 20210430
  25. PYRIDOXINE [Suspect]
     Active Substance: PYRIDOXINE
     Dosage: RESTARTED ON 18/JUN/2021
     Route: 048

REACTIONS (4)
  - Major depression [Recovering/Resolving]
  - Pyrexia [Unknown]
  - Refraction disorder [Unknown]
  - Dry eye [Unknown]

NARRATIVE: CASE EVENT DATE: 20210412
